FAERS Safety Report 9306023 (Version 1)
Quarter: 2013Q2

REPORT INFORMATION
  Report Type: Spontaneous
  Country: ES (occurrence: ES)
  Receive Date: 20130523
  Receipt Date: 20130523
  Transmission Date: 20140414
  Serious: Yes (Hospitalization, Other)
  Sender: FDA-Public Use
  Company Number: ES-OTSUKA-EU-2013-10119

PATIENT
  Sex: 0

DRUGS (6)
  1. PLETAL [Suspect]
     Route: 048
     Dates: start: 201301
  2. ADIRO 100 MG COMPRIMIDOS GASTRORRESISTENTES EFG, 30 COMPRIMIDOS [Concomitant]
     Indication: INTERMITTENT CLAUDICATION
     Route: 048
  3. CLOPIDOGREL [Concomitant]
     Indication: INTERMITTENT CLAUDICATION
     Route: 048
  4. SIMVASTATINA [Concomitant]
     Indication: HYPERLIPIDAEMIA
     Route: 048
     Dates: end: 20130308
  5. INDAPAMIDA [Concomitant]
     Indication: HYPERTENSION
     Route: 048
     Dates: end: 20130308
  6. RANITIDINA [Concomitant]
     Indication: PROPHYLAXIS
     Route: 048

REACTIONS (5)
  - Coronary artery stenosis [Unknown]
  - Bundle branch block left [Unknown]
  - Angina pectoris [Recovered/Resolved]
  - Chest pain [Unknown]
  - Hypertension [Unknown]
